FAERS Safety Report 19395457 (Version 6)
Quarter: 2024Q4

REPORT INFORMATION
  Report Type: Report from Study
  Country: KR (occurrence: KR)
  Receive Date: 20210609
  Receipt Date: 20241028
  Transmission Date: 20250115
  Serious: Yes (Other)
  Sender: NOVARTIS
  Company Number: NVSC2021KR124543

PATIENT
  Sex: Female
  Weight: 59.5 kg

DRUGS (27)
  1. RYDAPT [Suspect]
     Active Substance: MIDOSTAURIN
     Indication: Acute myeloid leukaemia
     Dosage: 50 MG, BID
     Route: 048
     Dates: start: 20210405, end: 20210418
  2. RYDAPT [Suspect]
     Active Substance: MIDOSTAURIN
     Dosage: 50 MG, BID
     Route: 048
     Dates: start: 20210531, end: 20210613
  3. RYDAPT [Suspect]
     Active Substance: MIDOSTAURIN
     Dosage: 50 MG, BID
     Route: 048
     Dates: start: 20210713, end: 20210726
  4. DAUNORUBICIN [Concomitant]
     Active Substance: DAUNORUBICIN
     Indication: Acute myeloid leukaemia
     Dosage: 97.2 MG
     Route: 042
     Dates: start: 20210329, end: 20210331
  5. DAUNORUBICIN [Concomitant]
     Active Substance: DAUNORUBICIN
     Dosage: UNK
     Route: 065
  6. CYTARABINE [Concomitant]
     Active Substance: CYTARABINE
     Indication: Acute myeloid leukaemia
     Dosage: 324 MG
     Route: 042
     Dates: start: 20210329, end: 20210403
  7. CYTARABINE [Concomitant]
     Active Substance: CYTARABINE
     Dosage: 1570 MG (STRENGTH: 2000MG20MLV)
     Route: 042
     Dates: start: 20210524, end: 20210524
  8. CYTARABINE [Concomitant]
     Active Substance: CYTARABINE
     Dosage: 1570 MG (STRENGTH: 2000MG20MLV)
     Route: 042
     Dates: start: 20210526, end: 20210526
  9. CYTARABINE [Concomitant]
     Active Substance: CYTARABINE
     Dosage: 1570 MG (STRENGTH: 2000MG20MLV)
     Route: 042
     Dates: start: 20210706, end: 20210706
  10. CYTARABINE [Concomitant]
     Active Substance: CYTARABINE
     Dosage: 1570 MG (STRENGTH: 2000MG20MLV)
     Route: 042
     Dates: start: 20210708, end: 20210708
  11. CYTARABINE [Concomitant]
     Active Substance: CYTARABINE
     Dosage: 1570 MG (STRENGTH: 2000MG20MLV)
     Route: 042
     Dates: start: 20210710, end: 20210710
  12. DIOVAN [Concomitant]
     Active Substance: VALSARTAN
     Indication: Hypertension
     Dosage: 1 DOSAGE FORM
     Route: 048
     Dates: start: 20210529
  13. FUNAZOL [Concomitant]
     Indication: Pleural effusion
     Dosage: 1 DF
     Route: 048
     Dates: start: 20210329
  14. GASTER [Concomitant]
     Active Substance: FAMOTIDINE
     Indication: Prophylaxis
     Dosage: 2 DOSAGE FORM
     Route: 048
     Dates: start: 20210317
  15. GLUCOPHAGE [Concomitant]
     Active Substance: METFORMIN HYDROCHLORIDE
     Indication: Type 2 diabetes mellitus
     Dosage: 2 DOSAGE FORM
     Route: 048
     Dates: start: 20210427
  16. Itomed [Concomitant]
     Indication: Prophylaxis
     Dosage: 1 DOSAGE FORM
     Route: 048
     Dates: start: 20210411
  17. JANUVIA [Concomitant]
     Active Substance: SITAGLIPTIN PHOSPHATE
     Indication: Type 2 diabetes mellitus
     Dosage: 1 DOSAGE FORM
     Route: 048
     Dates: start: 20210427
  18. MAXIPIME [Concomitant]
     Active Substance: CEFEPIME HYDROCHLORIDE
     Indication: Prophylaxis
     Dosage: 6 G
     Route: 042
     Dates: start: 20210316, end: 20210408
  19. MORPHINE SULFATE [Concomitant]
     Active Substance: MORPHINE SULFATE
     Indication: Prophylaxis
     Dosage: 5 MG
     Route: 042
     Dates: start: 20210411
  20. NORVASC [Concomitant]
     Active Substance: AMLODIPINE BESYLATE
     Indication: Hypertension
     Dosage: 1 DF
     Route: 048
     Dates: start: 20210530
  21. Ozex [Concomitant]
     Indication: Pleural effusion
     Dosage: 2 DOSAGE FORM
     Route: 048
     Dates: start: 20210508
  22. SULFAMETHOXAZOLE\TRIMETHOPRIM [Concomitant]
     Active Substance: SULFAMETHOXAZOLE\TRIMETHOPRIM
     Indication: Pleural effusion
     Dosage: 2 DOSAGE FORM
     Route: 048
     Dates: start: 20210421
  23. NALOXONE HYDROCHLORIDE\OXYCODONE HYDROCHLORIDE [Concomitant]
     Active Substance: NALOXONE HYDROCHLORIDE\OXYCODONE HYDROCHLORIDE
     Indication: Prophylaxis
     Dosage: 2 DOSAGE FORM
     Route: 048
     Dates: start: 20210418, end: 20210604
  24. TYLENOL 8HR [Concomitant]
     Active Substance: ACETAMINOPHEN
     Indication: Prophylaxis
     Dosage: 3 DOSAGE FORM
     Route: 048
     Dates: start: 20210329
  25. Vacrax [Concomitant]
     Indication: Prophylaxis
     Dosage: 2 DOSAGE FORM
     Route: 048
     Dates: start: 20210329
  26. UBACSIN [Concomitant]
     Indication: Rash
     Dosage: 3 G
     Route: 042
     Dates: start: 20210527
  27. NEUPOGEN [Concomitant]
     Active Substance: FILGRASTIM
     Indication: Prophylaxis
     Dosage: 300 UG
     Route: 042
     Dates: start: 20210720, end: 20210726

REACTIONS (1)
  - Leukaemic retinopathy [Not Recovered/Not Resolved]

NARRATIVE: CASE EVENT DATE: 20210427
